FAERS Safety Report 5312999-X (Version None)
Quarter: 2007Q2

REPORT INFORMATION
  Report Type: 
  Country: None (occurrence: None)
  Receive Date: 20070430
  Receipt Date: 20070402
  Transmission Date: 20071010
  Serious: Yes (Death)
  Sender: FDA-Public Use
  Company Number: NL-GENENTECH-239798

PATIENT
  Sex: Male

DRUGS (3)
  1. BEVACIZUMAB [Suspect]
     Indication: COLORECTAL CANCER
     Dosage: 700 MG, Q3W
     Dates: start: 20060807
  2. CAPECITABINE [Suspect]
     Indication: COLORECTAL CANCER
     Dosage: 2500 MG, BID
     Route: 048
  3. OXALIPLATIN [Suspect]
     Indication: COLORECTAL CANCER
     Dosage: 260 MG, QD
     Route: 042

REACTIONS (1)
  - CARDIAC FAILURE ACUTE [None]
